FAERS Safety Report 11299558 (Version 1)
Quarter: 2015Q3

REPORT INFORMATION
  Report Type: Spontaneous
  Country: US (occurrence: US)
  Receive Date: 20150722
  Receipt Date: 20150722
  Transmission Date: 20151125
  Serious: No
  Sender: FDA-Public Use
  Company Number: US-ELI_LILLY_AND_COMPANY-US201301003573

PATIENT
  Age: 4 Year
  Sex: Male

DRUGS (1)
  1. HUMATROPE [Suspect]
     Active Substance: SOMATROPIN
     Indication: BLOOD GROWTH HORMONE DECREASED
     Dosage: 1.8 MG, 4/W
     Dates: start: 20130105

REACTIONS (1)
  - Fear of injection [Unknown]

NARRATIVE: CASE EVENT DATE: 20130105
